FAERS Safety Report 5266222-5 (Version None)
Quarter: 2007Q1

REPORT INFORMATION
  Report Type: 
  Country: None (occurrence: None)
  Receive Date: 20070315
  Receipt Date: 20070313
  Transmission Date: 20070707
  Serious: Yes (Hospitalization)
  Sender: FDA-Public Use
  Company Number: FR-GLAXOSMITHKLINE-B0454216A

PATIENT

DRUGS (4)
  1. AUGMENTIN [Suspect]
     Route: 048
     Dates: start: 20061202, end: 20061207
  2. ZYRTEC [Concomitant]
     Route: 048
     Dates: start: 20061202, end: 20061207
  3. LEVOTHYROXINE SODIUM [Concomitant]
     Dosage: 75MCG PER DAY
     Route: 048
  4. LIVIAL [Concomitant]
     Dosage: 1UNIT PER DAY
     Route: 048

REACTIONS (11)
  - ABDOMINAL PAIN [None]
  - ABDOMINAL PAIN UPPER [None]
  - BRADYCARDIA [None]
  - DIZZINESS [None]
  - ELECTROCARDIOGRAM QT PROLONGED [None]
  - ERYTHEMA [None]
  - HYPERSENSITIVITY [None]
  - PRURITUS [None]
  - PULMONARY EMBOLISM [None]
  - RASH [None]
  - URTICARIA GENERALISED [None]
